FAERS Safety Report 9154124 (Version 2)
Quarter: 2013Q1

REPORT INFORMATION
  Report Type: Spontaneous
  Country: VE (occurrence: VE)
  Receive Date: 20130311
  Receipt Date: 20130315
  Transmission Date: 20140127
  Serious: Yes (Death)
  Sender: FDA-Public Use
  Company Number: VE-PFIZER INC-2013081705

PATIENT
  Age: 92 Year
  Sex: Male

DRUGS (1)
  1. LIPITOR [Suspect]
     Indication: HYPERCHOLESTEROLAEMIA
     Dosage: 20 MG, 1X/DAY
     Route: 048
     Dates: start: 2010, end: 20120718

REACTIONS (4)
  - Diarrhoea [Fatal]
  - Influenza [Fatal]
  - Abdominal pain upper [Fatal]
  - Renal failure [Fatal]
